FAERS Safety Report 17168638 (Version 2)
Quarter: 2020Q2

REPORT INFORMATION
  Report Type: Spontaneous
  Country: US (occurrence: US)
  Receive Date: 20191218
  Receipt Date: 20200513
  Transmission Date: 20200713
  Serious: Yes (Death, Other)
  Sender: FDA-Public Use
  Company Number: US-ASTRAZENECA-2018SF48141

PATIENT
  Age: 80 Year
  Sex: Female
  Weight: 49.9 kg

DRUGS (30)
  1. NEPHRO VITE RX [Concomitant]
     Active Substance: ASCORBIC ACID\BIOTIN\CALCIUM PANTOTHENATE\CYANOCOBALAMIN\FOLIC ACID\NIACINAMIDE\PYRIDOXINE HYDROCHLORIDE\RIBOFLAVIN\THIAMINE MONONITRATE
  2. ALBUTEROL. [Concomitant]
     Active Substance: ALBUTEROL
  3. RENVELA [Concomitant]
     Active Substance: SEVELAMER CARBONATE
  4. PREVACID [Suspect]
     Active Substance: LANSOPRAZOLE
     Route: 065
  5. LISINOPRIL. [Concomitant]
     Active Substance: LISINOPRIL
     Indication: BLOOD PRESSURE ABNORMAL
     Dates: start: 2009, end: 2015
  6. PEPCID OTC [Concomitant]
     Active Substance: FAMOTIDINE
  7. LEVOFLOXACIN. [Concomitant]
     Active Substance: LEVOFLOXACIN
  8. QUINTON [Concomitant]
  9. ZOSYN [Concomitant]
     Active Substance: PIPERACILLIN SODIUM\TAZOBACTAM SODIUM
  10. HYDRALAZINE [Concomitant]
     Active Substance: HYDRALAZINE HYDROCHLORIDE
     Indication: BLOOD PRESSURE ABNORMAL
     Dates: start: 2015
  11. TAGAMET [Concomitant]
     Active Substance: CIMETIDINE
  12. MARINOL [Concomitant]
     Active Substance: DRONABINOL
  13. INSULIN ASPART [Concomitant]
     Active Substance: INSULIN ASPART
  14. ABILIFY [Concomitant]
     Active Substance: ARIPIPRAZOLE
  15. DILTIAZEM. [Concomitant]
     Active Substance: DILTIAZEM
  16. VANCOMYCIN [Concomitant]
     Active Substance: VANCOMYCIN
     Indication: GASTRITIS
     Dates: start: 2015
  17. LINZESS [Concomitant]
     Active Substance: LINACLOTIDE
  18. AMLODIPINE [Concomitant]
     Active Substance: AMLODIPINE BESYLATE
  19. COLACE [Concomitant]
     Active Substance: DOCUSATE SODIUM
  20. NEXIUM 24HR [Suspect]
     Active Substance: ESOMEPRAZOLE MAGNESIUM
     Indication: GASTROOESOPHAGEAL REFLUX DISEASE
     Route: 048
     Dates: start: 2009, end: 2015
  21. PREVACID 24 HR [Suspect]
     Active Substance: LANSOPRAZOLE
     Indication: GASTROOESOPHAGEAL REFLUX DISEASE
     Route: 065
     Dates: start: 2009, end: 2015
  22. MEMANTINE. [Concomitant]
     Active Substance: MEMANTINE
  23. METOPROLOL. [Concomitant]
     Active Substance: METOPROLOL
  24. NAMENDA XR [Concomitant]
     Active Substance: MEMANTINE HYDROCHLORIDE
  25. ZANTAC [Concomitant]
     Active Substance: RANITIDINE HYDROCHLORIDE
  26. ASPIRIN. [Concomitant]
     Active Substance: ASPIRIN
  27. AMIODARONE [Concomitant]
     Active Substance: AMIODARONE
  28. K-DUR [Concomitant]
     Active Substance: POTASSIUM CHLORIDE
  29. PRILOSEC OTC [Suspect]
     Active Substance: OMEPRAZOLE MAGNESIUM
     Indication: GASTROOESOPHAGEAL REFLUX DISEASE
     Route: 048
     Dates: start: 2009, end: 2015
  30. PRAVACHOL [Concomitant]
     Active Substance: PRAVASTATIN SODIUM
     Indication: BLOOD CHOLESTEROL ABNORMAL
     Dates: start: 2009, end: 2015

REACTIONS (5)
  - Nephrogenic anaemia [Unknown]
  - Renal injury [Unknown]
  - Renal failure [Unknown]
  - Chronic kidney disease [Not Recovered/Not Resolved]
  - End stage renal disease [Unknown]

NARRATIVE: CASE EVENT DATE: 2009
